FAERS Safety Report 5502859-3 (Version None)
Quarter: 2007Q4

REPORT INFORMATION
  Report Type: 
  Country: None (occurrence: None)
  Receive Date: 20071031
  Receipt Date: 20071018
  Transmission Date: 20080405
  Serious: Yes (Hospitalization)
  Sender: FDA-Public Use
  Company Number: PFIZER INC-2007081880

PATIENT
  Sex: Male
  Weight: 109 kg

DRUGS (14)
  1. SUTENT [Suspect]
     Indication: METASTATIC RENAL CELL CARCINOMA
     Dosage: TEXT:UNIT DOSE: 12.5-25 MG TDD: 37.5 MG-FREQ:DAILY
     Route: 048
     Dates: start: 20061021, end: 20070726
  2. PHENYTOIN [Concomitant]
     Route: 048
  3. KEPPRA [Concomitant]
     Route: 048
     Dates: start: 20070401, end: 20070701
  4. LAMOTRIGINE [Concomitant]
     Route: 048
  5. NEURONTIN [Concomitant]
     Route: 048
     Dates: start: 20070701, end: 20070901
  6. ATENOLOL [Concomitant]
     Route: 048
  7. BETHANECHOL [Concomitant]
     Route: 048
  8. TAMSULOSIN HCL [Concomitant]
     Route: 048
  9. LOVENOX [Concomitant]
     Indication: THROMBOSIS PROPHYLAXIS
     Route: 048
     Dates: start: 20070701
  10. PSYLLIUM [Concomitant]
  11. NEXIUM [Concomitant]
     Route: 048
  12. OXYCODONE HCL [Concomitant]
     Route: 048
  13. OXYCONTIN [Concomitant]
     Route: 048
     Dates: start: 20070101, end: 20070901
  14. ZOLOFT [Concomitant]
     Route: 048

REACTIONS (1)
  - MYELITIS TRANSVERSE [None]
